FAERS Safety Report 7099451-9 (Version None)
Quarter: 2010Q4

REPORT INFORMATION
  Report Type: 
  Country: None (occurrence: None)
  Receive Date: 20101105
  Receipt Date: 20101021
  Transmission Date: 20110411
  Serious: Yes (Other)
  Sender: FDA-Public Use
  Company Number: 2010FR0043

PATIENT
  Sex: Male

DRUGS (1)
  1. ORFADIN [Suspect]

REACTIONS (5)
  - ALPHA 1 FOETOPROTEIN INCREASED [None]
  - HEPATIC CIRRHOSIS [None]
  - HEPATIC NEOPLASM [None]
  - HEPATIC NEOPLASM MALIGNANT [None]
  - TREATMENT NONCOMPLIANCE [None]
